FAERS Safety Report 8576785-X (Version None)
Quarter: 2012Q3

REPORT INFORMATION
  Report Type: 
  Country: None (occurrence: None)
  Receive Date: 20120807
  Receipt Date: 20120726
  Transmission Date: 20120928
  Serious: Yes (Other)
  Sender: FDA-Public Use
  Company Number: US-ALEXION-A201201104

PATIENT
  Sex: Male
  Weight: 87.9 kg

DRUGS (1)
  1. SOLIRIS [Suspect]
     Indication: PAROXYSMAL NOCTURNAL HAEMOGLOBINURIA
     Dosage: UNK
     Route: 042
     Dates: end: 20110101

REACTIONS (3)
  - PLATELET COUNT DECREASED [None]
  - ATRIAL FIBRILLATION [None]
  - CARDIAC DISORDER [None]
